FAERS Safety Report 10435962 (Version 2)
Quarter: 2014Q4

REPORT INFORMATION
  Report Type: Spontaneous
  Country: GE (occurrence: GE)
  Receive Date: 20140908
  Receipt Date: 20141016
  Transmission Date: 20150528
  Serious: Yes (Disabling)
  Sender: FDA-Public Use
  Company Number: GE-ROCHE-1459360

PATIENT
  Age: 63 Year
  Sex: Female

DRUGS (3)
  1. MABTHERA [Suspect]
     Active Substance: RITUXIMAB
     Indication: B-CELL LYMPHOMA
     Dosage: COMPLETED 5 COURSES?375MG/M2, 700 MG I/V (R-CHOP REGIMEN)
     Route: 042
     Dates: start: 20140306
  2. MABTHERA [Suspect]
     Active Substance: RITUXIMAB
     Dosage: 375MG/2, 700 MG I/V (R-CHOP REGIMEN)
     Route: 042
     Dates: start: 20140617
  3. MABTHERA [Suspect]
     Active Substance: RITUXIMAB
     Dosage: 375MG/2, 700 MG I/V (R-CHOP REGIMEN)
     Route: 042
     Dates: start: 20140708, end: 20140708

REACTIONS (5)
  - Encephalopathy [Not Recovered/Not Resolved]
  - Memory impairment [Not Recovered/Not Resolved]
  - Paresis [Not Recovered/Not Resolved]
  - Asthenia [Not Recovered/Not Resolved]
  - Mood altered [Not Recovered/Not Resolved]

NARRATIVE: CASE EVENT DATE: 201407
